FAERS Safety Report 8092724-2 (Version None)
Quarter: 2011Q4

REPORT INFORMATION
  Report Type: 
  Country: None (occurrence: None)
  Receive Date: 20111222
  Receipt Date: 20111111
  Transmission Date: 20120403
  Serious: Yes (Hospitalization)
  Sender: FDA-Public Use
  Company Number: UTC-012307

PATIENT
  Age: 70 Year
  Sex: Male

DRUGS (1)
  1. TYVASO [Suspect]
     Indication: PULMONARY ARTERIAL HYPERTENSION
     Dosage: (6 MCG),  INHALATION
     Route: 055
     Dates: start: 20110825, end: 20111001

REACTIONS (3)
  - PNEUMONIA [None]
  - HAEMOPTYSIS [None]
  - DRUG INEFFECTIVE [None]
